FAERS Safety Report 13727019 (Version 1)
Quarter: 2017Q3

REPORT INFORMATION
  Report Type: Spontaneous
  Country: US (occurrence: US)
  Receive Date: 20170706
  Receipt Date: 20170706
  Transmission Date: 20171127
  Serious: Yes (Hospitalization)
  Sender: FDA-Public Use
  Company Number: US-IMPAX LABORATORIES, INC-2017-IPXL-01963

PATIENT
  Age: 39 Year
  Sex: Male

DRUGS (4)
  1. MIDODRINE HYDROCHLORIDE. [Suspect]
     Active Substance: MIDODRINE HYDROCHLORIDE
     Indication: HEPATORENAL SYNDROME
     Dosage: UNK
     Route: 065
  2. OCTREOTIDE. [Suspect]
     Active Substance: OCTREOTIDE
     Indication: HEPATORENAL SYNDROME
     Dosage: UNK
     Route: 065
  3. LACTULOSE. [Concomitant]
     Active Substance: LACTULOSE
     Indication: HEPATIC ENCEPHALOPATHY
     Dosage: UNK
     Route: 065
  4. ALBUMIN [Suspect]
     Active Substance: ALBUMIN HUMAN
     Indication: HEPATORENAL SYNDROME
     Dosage: UNK
     Route: 065

REACTIONS (3)
  - Acute kidney injury [Recovering/Resolving]
  - Disseminated intravascular coagulation [Recovering/Resolving]
  - Portal vein thrombosis [Recovering/Resolving]
